FAERS Safety Report 13545566 (Version 1)
Quarter: 2017Q2

REPORT INFORMATION
  Report Type: Spontaneous
  Country: IT (occurrence: IT)
  Receive Date: 20170515
  Receipt Date: 20170515
  Transmission Date: 20170830
  Serious: Yes (Other)
  Sender: FDA-Public Use
  Company Number: IT-MYLANLABS-2017M1028572

PATIENT

DRUGS (2)
  1. OXALIPLATIN. [Suspect]
     Active Substance: OXALIPLATIN
     Indication: GASTROENTEROPANCREATIC NEUROENDOCRINE TUMOUR DISEASE
     Dosage: UNK UNK, CYCLE
     Route: 042
     Dates: start: 2008
  2. GEMCITABINE [Suspect]
     Active Substance: GEMCITABINE\GEMCITABINE HYDROCHLORIDE
     Indication: GASTROENTEROPANCREATIC NEUROENDOCRINE TUMOUR DISEASE
     Dosage: UNK, CYCLE
     Route: 042
     Dates: start: 2008

REACTIONS (1)
  - Neurotoxicity [Unknown]
